FAERS Safety Report 18300440 (Version 2)
Quarter: 2020Q4

REPORT INFORMATION
  Report Type: Spontaneous
  Country: US (occurrence: US)
  Receive Date: 20200923
  Receipt Date: 20201009
  Transmission Date: 20210113
  Serious: Yes (Other)
  Sender: FDA-Public Use
  Company Number: US-LUPIN PHARMACEUTICALS INC.-2020-06223

PATIENT
  Sex: Female
  Weight: 54.88 kg

DRUGS (1)
  1. AMLODIPINE BESYLATE TABLETS USP, 10 MG [Suspect]
     Active Substance: AMLODIPINE BESYLATE
     Indication: HYPERTENSION
     Dosage: 10 MILLIGRAM, QD
     Route: 048
     Dates: start: 2020

REACTIONS (5)
  - Anaphylactic reaction [Recovering/Resolving]
  - Paraesthesia oral [Recovering/Resolving]
  - Pharyngeal swelling [Recovering/Resolving]
  - Nasal oedema [Recovering/Resolving]
  - Eye swelling [Recovering/Resolving]
